FAERS Safety Report 22147942 (Version 1)
Quarter: 2023Q1

REPORT INFORMATION
  Report Type: Spontaneous
  Country: US (occurrence: None)
  Receive Date: 20230328
  Receipt Date: 20230328
  Transmission Date: 20230418
  Serious: Yes (Hospitalization)
  Sender: FDA-Public Use
  Company Number: None

PATIENT
  Age: 29 Year
  Sex: Female

DRUGS (2)
  1. ELEPSIA XR [Suspect]
     Active Substance: LEVETIRACETAM
     Indication: Epilepsy
     Dosage: FREQUENCY : DAILY;?
     Route: 048
  2. ELEPSIA XR [Suspect]
     Active Substance: LEVETIRACETAM
     Indication: Epilepsy
     Dosage: OTHER FREQUENCY : DAILY PM;?
     Route: 048

REACTIONS (7)
  - Underdose [None]
  - Incorrect dose administered [None]
  - Drug withdrawal convulsions [None]
  - Fall [None]
  - Head injury [None]
  - Product availability issue [None]
  - Product dose omission issue [None]
